FAERS Safety Report 20771880 (Version 1)
Quarter: 2022Q2

REPORT INFORMATION
  Report Type: Spontaneous
  Country: US (occurrence: US)
  Receive Date: 20220430
  Receipt Date: 20220430
  Transmission Date: 20220721
  Serious: No
  Sender: FDA-Public Use
  Company Number: US-AMGEN-USASP2022074492

PATIENT
  Age: 70 Year

DRUGS (1)
  1. EVENITY [Suspect]
     Active Substance: ROMOSOZUMAB-AQQG
     Indication: Product used for unknown indication
     Dosage: UNK, QMO
     Route: 065

REACTIONS (4)
  - Rash [Unknown]
  - Dyspnoea [Unknown]
  - Pruritus [Unknown]
  - Chest pain [Unknown]
